FAERS Safety Report 8868850 (Version 1)
Quarter: 2012Q4

REPORT INFORMATION
  Report Type: 
  Country: JP (occurrence: JP)
  Receive Date: 20121024
  Receipt Date: 20121024
  Transmission Date: 20130627
  Serious: Yes (Other)
  Sender: FDA-Public Use
  Company Number: JP-TEVA-365079ISR

PATIENT
  Age: 68 Year
  Sex: Female

DRUGS (2)
  1. LANSOPRAZOLE [Suspect]
     Route: 065
  2. ZOLPIDEM [Concomitant]
     Route: 065

REACTIONS (1)
  - Colitis microscopic [Recovered/Resolved]
